FAERS Safety Report 24233982 (Version 1)
Quarter: 2024Q3

REPORT INFORMATION
  Report Type: Spontaneous
  Country: US (occurrence: US)
  Receive Date: 20240821
  Receipt Date: 20240821
  Transmission Date: 20241017
  Serious: No
  Sender: PFIZER
  Company Number: US-PFIZER INC-202400239364

PATIENT
  Age: 19 Year
  Sex: Male

DRUGS (1)
  1. OXBRYTA [Suspect]
     Active Substance: VOXELOTOR
     Dosage: 1500 MG, 1X/DAY, (500MG, 3 TABLETS ONCE DAILY)
     Route: 048

REACTIONS (1)
  - Blood bilirubin decreased [Not Recovered/Not Resolved]
